FAERS Safety Report 8962206 (Version 1)
Quarter: 2012Q4

REPORT INFORMATION
  Report Type: 
  Country: CN (occurrence: CN)
  Receive Date: 20121212
  Receipt Date: 20121212
  Transmission Date: 20130627
  Serious: Yes (Death, Other)
  Sender: FDA-Public Use
  Company Number: CN-WATSON-2012-21892

PATIENT
  Age: 53 Year
  Sex: Female

DRUGS (4)
  1. TACROLIMUS (UNKNOWN) [Suspect]
     Indication: LIVER TRANSPLANT REJECTION
     Dosage: UNK
     Route: 065
  2. CYCLOSPORINE (WATSON LABORATORIES) [Suspect]
     Indication: LIVER TRANSPLANT
     Dosage: UNK
     Route: 065
  3. PREDNISOLONE [Suspect]
     Indication: LIVER TRANSPLANT REJECTION
     Dosage: UNK
     Route: 065
  4. MYCOPHENOLATE MOFETIL [Suspect]
     Indication: LIVER TRANSPLANT REJECTION
     Dosage: UNK
     Route: 065

REACTIONS (2)
  - Burkitt^s lymphoma [Fatal]
  - Post transplant lymphoproliferative disorder [Fatal]
